FAERS Safety Report 7581168-5 (Version None)
Quarter: 2011Q2

REPORT INFORMATION
  Report Type: 
  Country: None (occurrence: None)
  Receive Date: 20110629
  Receipt Date: 20110620
  Transmission Date: 20111010
  Serious: Yes (Hospitalization)
  Sender: FDA-Public Use
  Company Number: AU-ASTRAZENECA-2011SE38258

PATIENT
  Age: 51 Year
  Sex: Female

DRUGS (2)
  1. OXYCODONE HCL [Concomitant]
  2. XYLOCAINE VISCOUS [Suspect]
     Dosage: ONCE/SINGLE ADMINISTRATION
     Route: 048
     Dates: start: 20110615, end: 20110615

REACTIONS (8)
  - SOMNOLENCE [None]
  - APHASIA [None]
  - DYSKINESIA [None]
  - HEADACHE [None]
  - CHEST PAIN [None]
  - DIZZINESS [None]
  - PHARYNGEAL HYPOAESTHESIA [None]
  - MUSCLE TWITCHING [None]
